FAERS Safety Report 5125918-6 (Version None)
Quarter: 2006Q4

REPORT INFORMATION
  Report Type: 
  Country: None (occurrence: None)
  Receive Date: 20061012
  Receipt Date: 20060927
  Transmission Date: 20070319
  Serious: Yes (Hospitalization)
  Sender: FDA-Public Use
  Company Number: BR-AVENTIS-200620099GDDC

PATIENT
  Age: 61 Year
  Sex: Male
  Weight: 82.3 kg

DRUGS (2)
  1. ALLEGRA-D 12 HOUR [Suspect]
     Indication: DRUG USE FOR UNKNOWN INDICATION
     Route: 048
     Dates: start: 20060301, end: 20060823
  2. SUNITINIB MALATE [Suspect]
     Indication: METASTATIC RENAL CELL CARCINOMA
     Route: 048
     Dates: start: 20060418

REACTIONS (7)
  - ATELECTASIS [None]
  - ATRIAL FIBRILLATION [None]
  - HAEMOPTYSIS [None]
  - METASTASES TO GASTROINTESTINAL TRACT [None]
  - PERICARDIAL EFFUSION [None]
  - PLEURAL EFFUSION [None]
  - PNEUMONIA [None]
